FAERS Safety Report 13313724 (Version 1)
Quarter: 2017Q1

REPORT INFORMATION
  Report Type: Spontaneous
  Country: US (occurrence: US)
  Receive Date: 20170309
  Receipt Date: 20170309
  Transmission Date: 20170428
  Serious: No
  Sender: FDA-Public Use
  Company Number: US-TURING PHARMACEUTICALS-2016TNG00009

PATIENT
  Sex: Female

DRUGS (2)
  1. DARAPRIM [Suspect]
     Active Substance: PYRIMETHAMINE
     Dosage: 25 MG, 1X/DAY
     Route: 048
     Dates: start: 20160129, end: 201602
  2. DARAPRIM [Suspect]
     Active Substance: PYRIMETHAMINE
     Indication: EYE INFECTION TOXOPLASMAL
     Dosage: 75 MG, 1X/DAY
     Route: 048
     Dates: start: 20160127, end: 20160128

REACTIONS (3)
  - Urticaria [Unknown]
  - Eye infection [Recovered/Resolved]
  - Hypersensitivity [Unknown]

NARRATIVE: CASE EVENT DATE: 2016
